FAERS Safety Report 7625419-7 (Version None)
Quarter: 2011Q3

REPORT INFORMATION
  Report Type: 
  Country: None (occurrence: None)
  Receive Date: 20110721
  Receipt Date: 20110708
  Transmission Date: 20111222
  Serious: Yes (Hospitalization)
  Sender: FDA-Public Use
  Company Number: US-JNJFOC-20110704470

PATIENT
  Age: 45 Year
  Sex: Male

DRUGS (30)
  1. ATIVAN [Concomitant]
     Dates: start: 20010328
  2. SEPTRA [Concomitant]
     Dates: start: 20060319
  3. WARFARIN SODIUM [Concomitant]
     Dates: start: 20070512, end: 20070817
  4. EFAVIRENZ [Suspect]
     Indication: HIV INFECTION
     Route: 048
     Dates: start: 20060628
  5. ENSURE [Concomitant]
     Dates: start: 20060319
  6. TRUVADA [Suspect]
     Indication: HIV INFECTION
     Route: 048
     Dates: start: 20060628
  7. LOVENOX [Concomitant]
     Indication: VENOUS THROMBOSIS
     Dates: start: 20070411, end: 20070412
  8. WARFARIN SODIUM [Concomitant]
     Dates: start: 20070507, end: 20070510
  9. MITOMYCIN [Suspect]
     Indication: ANAL CANCER
     Dates: start: 20070402, end: 20070507
  10. FLUOROURACIL [Suspect]
     Indication: ANAL CANCER
     Dates: start: 20070402, end: 20070406
  11. ZITHROMAX [Concomitant]
     Dates: start: 20060319
  12. HEPARIN [Concomitant]
     Dates: start: 20070411, end: 20070411
  13. VITAMINS NOS [Concomitant]
     Dates: start: 20060319
  14. DARUNAVIR ETHANOLATE [Suspect]
     Indication: HIV INFECTION
     Route: 048
     Dates: start: 20060628
  15. NORVIR [Suspect]
     Indication: HIV INFECTION
     Route: 048
     Dates: start: 20060628
  16. FLUCONAZOLE [Concomitant]
     Dates: start: 20060329
  17. VALCYTE [Concomitant]
     Dates: start: 20010905
  18. WARFARIN SODIUM [Concomitant]
     Dates: start: 20070415, end: 20070417
  19. WARFARIN SODIUM [Concomitant]
     Dates: start: 20070413, end: 20070414
  20. PLACEBO [Suspect]
     Indication: HIV INFECTION
     Route: 048
     Dates: start: 20060628, end: 20071003
  21. KLONOPIN [Concomitant]
     Dates: start: 20011212
  22. DICLOXACILLIN [Concomitant]
     Dates: start: 20060329
  23. NEUPOGEN [Concomitant]
     Dates: start: 20060319
  24. NEUPOGEN [Concomitant]
     Dates: start: 20070414, end: 20070418
  25. HEPARIN [Concomitant]
     Dates: start: 20070410, end: 20070410
  26. HEPARIN [Concomitant]
     Dates: start: 20070409, end: 20070409
  27. MOMETASONE FUROATE [Concomitant]
     Dates: start: 20060920
  28. WARFARIN SODIUM [Concomitant]
     Dates: start: 20070411, end: 20070411
  29. FUROSEMIDE [Concomitant]
     Dates: start: 20070808
  30. WARFARIN SODIUM [Concomitant]
     Indication: VENOUS THROMBOSIS
     Dates: start: 20070511, end: 20070511

REACTIONS (5)
  - SUBCLAVIAN VEIN THROMBOSIS [None]
  - APLASIA PURE RED CELL [None]
  - FEBRILE NEUTROPENIA [None]
  - AXILLARY VEIN THROMBOSIS [None]
  - ANAL CANCER [None]
